FAERS Safety Report 12219488 (Version 2)
Quarter: 2016Q2

REPORT INFORMATION
  Report Type: Report from Study
  Country: US (occurrence: US)
  Receive Date: 20160329
  Receipt Date: 20160413
  Transmission Date: 20160815
  Serious: Yes (Hospitalization)
  Sender: FDA-Public Use
  Company Number: US-BIOGEN-2016BI00209304

PATIENT
  Age: 70 Year
  Sex: Male

DRUGS (2)
  1. AVONEX [Suspect]
     Active Substance: INTERFERON BETA-1A
     Indication: MULTIPLE SCLEROSIS
     Route: 030
  2. AVONEX [Suspect]
     Active Substance: INTERFERON BETA-1A
     Route: 030

REACTIONS (6)
  - Balance disorder [Not Recovered/Not Resolved]
  - Knee arthroplasty [Recovered/Resolved]
  - Depression [Not Recovered/Not Resolved]
  - Pyrexia [Recovered/Resolved]
  - Hypoaesthesia [Not Recovered/Not Resolved]
  - Nasopharyngitis [Recovered/Resolved]

NARRATIVE: CASE EVENT DATE: 2014
